FAERS Safety Report 7512595-X (Version None)
Quarter: 2011Q2

REPORT INFORMATION
  Report Type: 
  Country: None (occurrence: None)
  Receive Date: 20110525
  Receipt Date: 20110525
  Transmission Date: 20111010
  Serious: Yes (Death)
  Sender: FDA-Public Use
  Company Number: None

PATIENT
  Age: 71 Year
  Sex: Female

DRUGS (7)
  1. MIRTAZAPINE [Concomitant]
  2. LOPERAMIDE [Concomitant]
  3. TACROLIMUS [Concomitant]
  4. ZOLPIDEM [Concomitant]
  5. VITAMIN B COMPLEX CAP [Concomitant]
  6. REVLIMID [Suspect]
     Indication: MULTIPLE MYELOMA
     Dosage: REVLIMID 15MG DAILY X14DAYS ORALLY
     Route: 048
     Dates: start: 20101001
  7. OCTREOTIDE ACETATE [Concomitant]

REACTIONS (13)
  - HYPOTENSION [None]
  - ACUTE MYOCARDIAL INFARCTION [None]
  - FATIGUE [None]
  - HYPOPHAGIA [None]
  - ASTHENIA [None]
  - PAIN [None]
  - FAECAL INCONTINENCE [None]
  - DYSPNOEA [None]
  - SEPSIS [None]
  - DIALYSIS [None]
  - DIARRHOEA [None]
  - GAIT DISTURBANCE [None]
  - RENAL FAILURE ACUTE [None]
